FAERS Safety Report 6410436-5 (Version None)
Quarter: 2009Q4

REPORT INFORMATION
  Report Type: 
  Country: None (occurrence: None)
  Receive Date: 20091022
  Receipt Date: 20091009
  Transmission Date: 20100525
  Serious: Yes (Death, Hospitalization)
  Sender: FDA-Public Use
  Company Number: US-GENENTECH-289221

PATIENT
  Sex: Female
  Weight: 101.2 kg

DRUGS (14)
  1. OMALIZUMAB [Suspect]
     Indication: ASTHMA
     Dosage: 225 MG, Q2W
     Route: 058
     Dates: start: 20060502
  2. OMALIZUMAB [Suspect]
     Indication: HYPERSENSITIVITY
  3. XOPENEX [Concomitant]
     Indication: ASTHMA
  4. XOPENEX [Concomitant]
     Indication: HYPERSENSITIVITY
  5. ALBUTEROL [Concomitant]
     Indication: ASTHMA
  6. ALBUTEROL [Concomitant]
     Indication: HYPERSENSITIVITY
  7. ADVAIR DISKUS 100/50 [Concomitant]
     Indication: ASTHMA
  8. ADVAIR DISKUS 100/50 [Concomitant]
     Indication: HYPERSENSITIVITY
  9. SPIRIVA [Concomitant]
     Indication: ASTHMA
  10. SPIRIVA [Concomitant]
     Indication: HYPERSENSITIVITY
  11. ASTELIN [Concomitant]
     Indication: ASTHMA
  12. ASTELIN [Concomitant]
     Indication: HYPERSENSITIVITY
  13. BENADRYL [Concomitant]
     Indication: ASTHMA
  14. BENADRYL [Concomitant]
     Indication: HYPERSENSITIVITY

REACTIONS (1)
  - RESPIRATORY FAILURE [None]
